FAERS Safety Report 24201522 (Version 1)
Quarter: 2024Q3

REPORT INFORMATION
  Report Type: Spontaneous
  Country: US (occurrence: US)
  Receive Date: 20240812
  Receipt Date: 20240812
  Transmission Date: 20241017
  Serious: No
  Sender: PERRIGO
  Company Number: US-PERRIGO-24US005020

PATIENT

DRUGS (1)
  1. GUAIFENESIN\PSEUDOEPHEDRINE HYDROCHLORIDE [Suspect]
     Active Substance: GUAIFENESIN\PSEUDOEPHEDRINE HYDROCHLORIDE
     Indication: Product used for unknown indication
     Dosage: 2 TABLETS, SINGLE
     Route: 048
     Dates: start: 20240522, end: 20240522

REACTIONS (1)
  - Incorrect dose administered [Unknown]

NARRATIVE: CASE EVENT DATE: 20240522
